FAERS Safety Report 18032102 (Version 2)
Quarter: 2020Q3

REPORT INFORMATION
  Report Type: Report from Study
  Country: GB (occurrence: GB)
  Receive Date: 20200716
  Receipt Date: 20200903
  Transmission Date: 20201103
  Serious: Yes (Other)
  Sender: FDA-Public Use
  Company Number: GB-AMGEN-GBRSL2020112669

PATIENT
  Age: 42 Year
  Sex: Male

DRUGS (2)
  1. AMGEVITA [Suspect]
     Active Substance: ADALIMUMAB
     Indication: CROHN^S DISEASE
     Dosage: 40 MILLIGRAM, Q2WK
     Route: 065
  2. BENEPALI [Concomitant]
     Active Substance: ETANERCEPT

REACTIONS (3)
  - Depression [Not Recovered/Not Resolved]
  - Abdominal pain lower [Unknown]
  - Crohn^s disease [Unknown]
